FAERS Safety Report 4906630-2 (Version None)
Quarter: 2006Q1

REPORT INFORMATION
  Report Type: 
  Country: None (occurrence: None)
  Receive Date: 20060209
  Receipt Date: 20060204
  Transmission Date: 20060701
  Serious: Yes (Other)
  Sender: FDA-Public Use
  Company Number: GB-GLAXOSMITHKLINE-B0409074A

PATIENT
  Age: 66 Year
  Sex: Male
  Weight: 54 kg

DRUGS (7)
  1. ZYBAN [Suspect]
     Indication: SMOKING CESSATION THERAPY
     Dosage: 150MG TWICE PER DAY
     Route: 048
     Dates: start: 20060104, end: 20060118
  2. ASPIRIN [Concomitant]
     Indication: MYOCARDIAL ISCHAEMIA
     Dosage: 75MG PER DAY
     Route: 065
     Dates: start: 19960808
  3. CARBOCYSTEINE [Concomitant]
     Indication: CHRONIC OBSTRUCTIVE PULMONARY DISEASE
     Dosage: 375MG PER DAY
     Route: 065
     Dates: start: 20050525
  4. FELODIPINE [Concomitant]
     Indication: MYOCARDIAL ISCHAEMIA
     Dosage: 25MG PER DAY
     Route: 065
     Dates: start: 20051129
  5. SPIRIVA [Concomitant]
     Indication: CHRONIC OBSTRUCTIVE PULMONARY DISEASE
     Dosage: 18MCG PER DAY
     Dates: start: 20060111
  6. SIMVADOR [Concomitant]
     Indication: MYOCARDIAL ISCHAEMIA
     Dosage: 20MG PER DAY
     Route: 065
     Dates: start: 20040211
  7. OMEPRAZOLE [Concomitant]
     Indication: MYOCARDIAL ISCHAEMIA
     Dosage: 10MG PER DAY
     Route: 065
     Dates: start: 19970908

REACTIONS (1)
  - ERECTILE DYSFUNCTION [None]
